FAERS Safety Report 8063980-1 (Version None)
Quarter: 2012Q1

REPORT INFORMATION
  Report Type: 
  Country: None (occurrence: None)
  Receive Date: 20120123
  Receipt Date: 20120113
  Transmission Date: 20120608
  Serious: No
  Sender: FDA-Public Use
  Company Number: US-B.I. PHARMACEUTICALS,INC./RIDGEFIELD-2011-BP-26741BP

PATIENT
  Sex: Male

DRUGS (15)
  1. VITAMIN D [Concomitant]
     Indication: ROUTINE HEALTH MAINTENANCE
     Dosage: 2000 U
     Route: 048
     Dates: start: 20090101
  2. LITHIUM [Concomitant]
     Indication: DEPRESSION
     Dosage: 300 MG
     Route: 048
     Dates: start: 20050101
  3. COMBIVENT [Suspect]
     Indication: CHRONIC OBSTRUCTIVE PULMONARY DISEASE
     Dosage: 8 PUF
     Route: 055
     Dates: start: 20111001
  4. AVODART [Concomitant]
     Indication: BENIGN PROSTATIC HYPERPLASIA
     Dosage: 0.5 MG
     Route: 048
     Dates: start: 20060101
  5. ARICEPT [Concomitant]
     Indication: AMNESIA
     Dosage: 10 MG
     Route: 048
     Dates: start: 20090101
  6. EFFEXOR [Concomitant]
     Indication: DEPRESSION
     Dosage: 150 MG
     Route: 048
     Dates: start: 20050101
  7. BUPROPION HYDROCHLORIDE [Concomitant]
     Dosage: 150 MG
     Route: 048
     Dates: start: 20050101
  8. FLOMAX [Concomitant]
     Indication: BENIGN PROSTATIC HYPERPLASIA
     Dosage: 0.8 MG
     Route: 048
     Dates: start: 20060101
  9. SIMVASTATIN [Concomitant]
     Indication: BLOOD CHOLESTEROL INCREASED
     Dosage: 5 MG
     Route: 048
     Dates: start: 20090101
  10. FOLIC ACID [Concomitant]
     Indication: ROUTINE HEALTH MAINTENANCE
     Dosage: 800 MCG
     Route: 048
     Dates: start: 20070101
  11. ASPIRIN [Concomitant]
     Indication: PROPHYLAXIS
     Dosage: 81 MG
     Route: 048
     Dates: start: 20100101
  12. STOOL SOFTENER [Concomitant]
     Indication: CONSTIPATION
     Dosage: 200 MG
     Route: 048
     Dates: start: 20090101
  13. ACETAMINOPHEN [Concomitant]
     Indication: PAIN
     Dates: start: 20100101
  14. VITAMIN B-12 [Concomitant]
     Route: 030
     Dates: start: 20100101
  15. LISINOPRIL [Concomitant]
     Indication: HYPERTENSION
     Dosage: 150 MG
     Route: 048
     Dates: start: 20070101

REACTIONS (3)
  - PULMONARY CONGESTION [None]
  - DIZZINESS [None]
  - COUGH [None]
